FAERS Safety Report 13177152 (Version 1)
Quarter: 2017Q1

REPORT INFORMATION
  Report Type: Report from Study
  Country: US (occurrence: US)
  Receive Date: 20170201
  Receipt Date: 20170201
  Transmission Date: 20170428
  Serious: No
  Sender: FDA-Public Use
  Company Number: US-EXELIXIS-CABO-16007282

PATIENT

DRUGS (6)
  1. COREG [Concomitant]
     Active Substance: CARVEDILOL
  2. COMETRIQ [Suspect]
     Active Substance: CABOZANTINIB S-MALATE
     Dosage: 20 MG, 5 DAYS A WEEK
     Route: 048
     Dates: start: 2016
  3. COMETRIQ [Suspect]
     Active Substance: CABOZANTINIB S-MALATE
     Indication: RENAL CANCER
     Dosage: 40 MG, QD
     Route: 048
     Dates: start: 20160512, end: 201607
  4. DIOVAN [Concomitant]
     Active Substance: VALSARTAN
  5. AMLODIPINE BESYLATE. [Concomitant]
     Active Substance: AMLODIPINE BESYLATE
  6. RENVELA [Concomitant]
     Active Substance: SEVELAMER CARBONATE

REACTIONS (5)
  - Abdominal discomfort [Unknown]
  - Asthenia [Unknown]
  - Lethargy [Unknown]
  - Malignant neoplasm progression [Unknown]
  - Incorrect dose administered [Unknown]
